APPROVED DRUG PRODUCT: INFANTS' FEVERALL
Active Ingredient: ACETAMINOPHEN
Strength: 80MG
Dosage Form/Route: SUPPOSITORY;RECTAL
Application: N018337 | Product #004
Applicant: TARO PHARMACEUTICAL INDUSTRIES LTD
Approved: Aug 26, 1992 | RLD: Yes | RS: No | Type: OTC